FAERS Safety Report 4758003-3 (Version None)
Quarter: 2005Q3

REPORT INFORMATION
  Report Type: 
  Country: None (occurrence: None)
  Receive Date: 20050830
  Receipt Date: 20050824
  Transmission Date: 20060218
  Serious: Yes (Hospitalization, Other)
  Sender: FDA-Public Use
  Company Number: 200510456BWH

PATIENT
  Age: 46 Year
  Sex: Male

DRUGS (5)
  1. MOXIFLOXACIN HCL [Suspect]
     Dosage: SEE IMAGE
     Dates: start: 20040601, end: 20040720
  2. MOXIFLOXACIN HCL [Suspect]
     Dosage: SEE IMAGE
     Dates: end: 20040901
  3. ISONIAZID [Suspect]
     Dates: start: 20040601, end: 20040721
  4. RIFAMPIN [Suspect]
     Dates: start: 20040601, end: 20040721
  5. PYRAZINAMIDE [Suspect]
     Dates: start: 20040601, end: 20040721

REACTIONS (7)
  - ANAEMIA [None]
  - ANOREXIA [None]
  - CLOSTRIDIUM COLITIS [None]
  - DRUG TOXICITY [None]
  - DYSPNOEA [None]
  - PLATELET COUNT INCREASED [None]
  - WEIGHT DECREASED [None]
